FAERS Safety Report 12117624 (Version 1)
Quarter: 2016Q1

REPORT INFORMATION
  Report Type: Spontaneous
  Country: US (occurrence: US)
  Receive Date: 20160226
  Receipt Date: 20160226
  Transmission Date: 20160526
  Serious: No
  Sender: FDA-Public Use
  Company Number: US-AMGEN-USASP2016021697

PATIENT
  Sex: Female

DRUGS (1)
  1. ENBREL [Suspect]
     Active Substance: ETANERCEPT
     Indication: RHEUMATOID ARTHRITIS
     Dosage: 50 MG, ONCE WEEKLY
     Route: 065
     Dates: start: 20140904

REACTIONS (6)
  - Dyspepsia [Unknown]
  - Confusional state [Unknown]
  - Hot flush [Unknown]
  - Eye disorder [Unknown]
  - Inappropriate schedule of drug administration [Unknown]
  - Fatigue [Unknown]

NARRATIVE: CASE EVENT DATE: 201602
